FAERS Safety Report 17489099 (Version 1)
Quarter: 2020Q1

REPORT INFORMATION
  Report Type: Spontaneous
  Country: US (occurrence: US)
  Receive Date: 20200303
  Receipt Date: 20200303
  Transmission Date: 20200409
  Serious: Yes (Hospitalization)
  Sender: FDA-Public Use
  Company Number: None

PATIENT
  Age: 71 Year
  Sex: Female

DRUGS (14)
  1. ENBREL [Suspect]
     Active Substance: ETANERCEPT
     Indication: RHEUMATOID ARTHRITIS
     Dosage: ?          OTHER FREQUENCY:EVERY WEEK;?
     Route: 058
  2. INDAPAMIDE. [Concomitant]
     Active Substance: INDAPAMIDE
     Dates: start: 20160419
  3. SYNTHROID [Concomitant]
     Active Substance: LEVOTHYROXINE SODIUM
     Dates: start: 20120326
  4. VITAMIN D [Concomitant]
     Active Substance: VITAMIN D NOS
     Dates: start: 20120326
  5. ZOLOFT [Concomitant]
     Active Substance: SERTRALINE HYDROCHLORIDE
     Dates: start: 20190107
  6. ASSPIRIN [Concomitant]
     Dates: start: 19000101
  7. CALCIUM [Concomitant]
     Active Substance: CALCIUM
     Dates: start: 19000101
  8. EFUDEX [Concomitant]
     Active Substance: FLUOROURACIL
     Dates: start: 20160419
  9. KLOR-CON [Concomitant]
     Active Substance: POTASSIUM CHLORIDE
     Dates: start: 19000101
  10. LIPITOR [Concomitant]
     Active Substance: ATORVASTATIN CALCIUM
     Dates: start: 20190107
  11. GENTEAL MILD [Concomitant]
     Active Substance: HYPROMELLOSE 2910 (4000 MPA.S)
     Dates: start: 20160419
  12. LEVOCETIRIZINE [Concomitant]
     Active Substance: LEVOCETIRIZINE
     Dates: start: 20190107
  13. WOMENS 50+ [Concomitant]
     Dates: start: 20190107
  14. ZADITOR [Concomitant]
     Active Substance: KETOTIFEN FUMARATE
     Dates: start: 20160419

REACTIONS (3)
  - Diarrhoea [None]
  - Dehydration [None]
  - Asthenia [None]
